FAERS Safety Report 9689046 (Version 1)
Quarter: 2013Q4

REPORT INFORMATION
  Report Type: Spontaneous
  Country: US (occurrence: US)
  Receive Date: 20131114
  Receipt Date: 20131114
  Transmission Date: 20140711
  Serious: Yes (Other)
  Sender: FDA-Public Use
  Company Number: US-PERRIGO-13US011434

PATIENT
  Sex: 0

DRUGS (1)
  1. COLISTIMETHATE SODIUM RX 150 MG/VIAL 7N5 [Suspect]
     Indication: PRODUCT USED FOR UNKNOWN INDICATION
     Dosage: UNK
     Route: 042

REACTIONS (2)
  - Renal failure chronic [Unknown]
  - Nephropathy toxic [Unknown]
